FAERS Safety Report 21719879 (Version 1)
Quarter: 2022Q4

REPORT INFORMATION
  Report Type: Other
  Country: US (occurrence: US)
  Receive Date: 20221213
  Receipt Date: 20221213
  Transmission Date: 20230112
  Serious: Yes (Hospitalization)
  Sender: FDA-Public Use
  Company Number: US-HLS-202105351

PATIENT
  Age: 60 Year
  Sex: Male

DRUGS (3)
  1. CLOZAPINE [Suspect]
     Active Substance: CLOZAPINE
     Indication: Schizophrenia
     Route: 065
  2. CLOZAPINE [Suspect]
     Active Substance: CLOZAPINE
     Indication: Schizophrenia
     Route: 065
  3. CLOZAPINE [Suspect]
     Active Substance: CLOZAPINE
     Indication: Schizophrenia
     Dosage: NIGHTLY
     Route: 065
     Dates: start: 201502

REACTIONS (24)
  - Peripheral swelling [Recovered/Resolved]
  - Pulmonary embolism [Recovered/Resolved]
  - Delirium [Recovering/Resolving]
  - Delusion [Recovering/Resolving]
  - Dizziness [Recovering/Resolving]
  - Condition aggravated [Recovering/Resolving]
  - Salivary hypersecretion [Recovering/Resolving]
  - Fall [Recovering/Resolving]
  - Fatigue [Recovering/Resolving]
  - Hallucination [Recovering/Resolving]
  - Bundle branch block left [Recovering/Resolving]
  - Irritability [Recovering/Resolving]
  - Loss of consciousness [Recovering/Resolving]
  - Medication error [Recovering/Resolving]
  - Orthostatic hypotension [Recovering/Resolving]
  - Paranoia [Recovering/Resolving]
  - Parkinsonism [Recovering/Resolving]
  - Dyspnoea [Recovering/Resolving]
  - Electrocardiogram QT prolonged [Recovering/Resolving]
  - Dysarthria [Recovering/Resolving]
  - Embolism [Recovered/Resolved]
  - Transient ischaemic attack [Recovering/Resolving]
  - Accidental overdose [Recovering/Resolving]
  - Wheelchair user [Recovering/Resolving]
